FAERS Safety Report 17991546 (Version 1)
Quarter: 2020Q3

REPORT INFORMATION
  Report Type: Spontaneous
  Country: FR (occurrence: FR)
  Receive Date: 20200707
  Receipt Date: 20200707
  Transmission Date: 20201103
  Serious: Yes (Hospitalization)
  Sender: FDA-Public Use
  Company Number: NVSC2020FR187555

PATIENT
  Age: 91 Year
  Sex: Female
  Weight: 60 kg

DRUGS (2)
  1. CLOZAPINE. [Suspect]
     Active Substance: CLOZAPINE
     Indication: PRODUCT ADMINISTRATION ERROR
     Dosage: 200 MG, ONCE/SINGLE
     Route: 048
     Dates: start: 20200512, end: 20200512
  2. PARACETAMOL [Suspect]
     Active Substance: ACETAMINOPHEN
     Indication: PRODUCT ADMINISTRATION ERROR
     Dosage: 1 G, ONCE/SINGLE
     Route: 048
     Dates: start: 20200512, end: 20200512

REACTIONS (6)
  - Wrong patient received product [Recovered/Resolved]
  - Sinus tachycardia [Recovered/Resolved]
  - Accidental poisoning [Recovered/Resolved]
  - Product administration error [Recovered/Resolved]
  - Dysarthria [Recovered/Resolved]
  - Somnolence [Recovered/Resolved]

NARRATIVE: CASE EVENT DATE: 20200512
